FAERS Safety Report 6429346-2 (Version None)
Quarter: 2009Q4

REPORT INFORMATION
  Report Type: 
  Country: None (occurrence: None)
  Receive Date: 20091102
  Receipt Date: 20091026
  Transmission Date: 20100525
  Serious: Yes (Death, Other)
  Sender: FDA-Public Use
  Company Number: KV200900720

PATIENT
  Age: 46 Year
  Sex: Female

DRUGS (6)
  1. PROPAFENONE HCL [Suspect]
     Indication: ATRIAL FIBRILLATION
     Dosage: 150 MG, BID, ORAL; 150 MG, TID, ORAL
     Route: 048
     Dates: start: 20070201, end: 20070101
  2. PROPAFENONE HCL [Suspect]
     Indication: ATRIAL FIBRILLATION
     Dosage: 150 MG, BID, ORAL; 150 MG, TID, ORAL
     Route: 048
     Dates: start: 20070101, end: 20070909
  3. PROPAFENONE HCL [Suspect]
     Indication: ATRIAL FIBRILLATION
     Dosage: 225MG, TID , ORAL
     Route: 048
     Dates: start: 20080909, end: 20080901
  4. ATENOLOL [Concomitant]
  5. COUMADIN [Concomitant]
  6. DIURETICS [Concomitant]

REACTIONS (14)
  - ANOXIC ENCEPHALOPATHY [None]
  - ASTHENIA [None]
  - ATRIAL FIBRILLATION [None]
  - BRAIN DEATH [None]
  - CARDIAC ARREST [None]
  - DRUG INEFFECTIVE [None]
  - ELECTROCARDIOGRAM QT PROLONGED [None]
  - FATIGUE [None]
  - HAEMATEMESIS [None]
  - LOSS OF CONSCIOUSNESS [None]
  - NAUSEA [None]
  - PAIN [None]
  - SUDDEN CARDIAC DEATH [None]
  - VENTRICULAR FIBRILLATION [None]
